FAERS Safety Report 7420724-1 (Version None)
Quarter: 2011Q2

REPORT INFORMATION
  Report Type: 
  Country: None (occurrence: None)
  Receive Date: 20110418
  Receipt Date: 20110412
  Transmission Date: 20111010
  Serious: Yes (Other)
  Sender: FDA-Public Use
  Company Number: US-ROCHE-751885

PATIENT
  Sex: Female
  Weight: 61.2 kg

DRUGS (4)
  1. ACCUTANE [Suspect]
     Indication: ACNE
     Route: 065
     Dates: start: 19960301, end: 19961225
  2. SELENIUM SULFIDE [Concomitant]
  3. ACCUTANE [Suspect]
     Route: 065
     Dates: start: 19970311, end: 19970402
  4. ORTHO-NOVUM [Concomitant]

REACTIONS (4)
  - COLITIS ULCERATIVE [None]
  - HAEMORRHOIDS [None]
  - DEPRESSED MOOD [None]
  - IRRITABLE BOWEL SYNDROME [None]
